FAERS Safety Report 23239668 (Version 1)
Quarter: 2023Q4

REPORT INFORMATION
  Report Type: Spontaneous
  Country: US (occurrence: US)
  Receive Date: 20231129
  Receipt Date: 20231129
  Transmission Date: 20240109
  Serious: Yes (Other)
  Sender: FDA-Public Use
  Company Number: US-ABBVIE-5516956

PATIENT
  Sex: Male

DRUGS (1)
  1. IMBRUVICA [Suspect]
     Active Substance: IBRUTINIB
     Indication: Product used for unknown indication
     Dosage: FORM OF STRENGTH: 420 MG?TABLET BY MOUTH ONCE DAILY. TABLET SHOULD SWALLOWED WHOLE AND BE TAKEN W...
     Route: 048

REACTIONS (1)
  - Cardiac assistance device user [Not Recovered/Not Resolved]
